FAERS Safety Report 9101420 (Version 1)
Quarter: 2013Q1

REPORT INFORMATION
  Report Type: Spontaneous
  Country: US (occurrence: US)
  Receive Date: 20130215
  Receipt Date: 20130215
  Transmission Date: 20140127
  Serious: Yes (Other)
  Sender: FDA-Public Use
  Company Number: US-ASTELLAS-2013US000403

PATIENT
  Sex: Male

DRUGS (2)
  1. PROGRAF [Suspect]
     Indication: LIVER TRANSPLANT
     Dosage: 7 MG, UID/QD
     Route: 048
  2. PROGRAF [Suspect]
     Indication: SMALL INTESTINE TRANSPLANT

REACTIONS (2)
  - Off label use [Unknown]
  - Small intestine transplant [Unknown]
